FAERS Safety Report 14721054 (Version 2)
Quarter: 2018Q2

REPORT INFORMATION
  Report Type: Spontaneous
  Country: US (occurrence: US)
  Receive Date: 20180405
  Receipt Date: 20180606
  Transmission Date: 20180711
  Serious: Yes (Congenital Anomaly, Other)
  Sender: FDA-Public Use
  Company Number: PHEH2018US012841

PATIENT
  Sex: Female

DRUGS (2)
  1. ZOFRAN [Suspect]
     Active Substance: ONDANSETRON HYDROCHLORIDE
     Indication: FOETAL EXPOSURE DURING PREGNANCY
     Route: 064
  2. ZOFRAN [Suspect]
     Active Substance: ONDANSETRON HYDROCHLORIDE
     Indication: FOETAL EXPOSURE DURING PREGNANCY
     Route: 064

REACTIONS (11)
  - Left-to-right cardiac shunt [Unknown]
  - Injury [Unknown]
  - Urinary tract infection [Unknown]
  - Foetal exposure during pregnancy [Unknown]
  - Mitral valve incompetence [Unknown]
  - Cardiac murmur [Unknown]
  - Asthma [Unknown]
  - Atrial septal defect [Unknown]
  - Cardiomegaly [Unknown]
  - Takayasu^s arteritis [Unknown]
  - Tricuspid valve incompetence [Unknown]
